FAERS Safety Report 8269274-3 (Version None)
Quarter: 2012Q2

REPORT INFORMATION
  Report Type: 
  Country: None (occurrence: None)
  Receive Date: 20120409
  Receipt Date: 20120402
  Transmission Date: 20120825
  Serious: Yes (Hospitalization)
  Sender: FDA-Public Use
  Company Number: US-GILEAD-2012-0053055

PATIENT
  Age: 34 Week
  Sex: Male

DRUGS (5)
  1. EMTRICITABINE AND TENOFOVIR DISOPROXIL FUMARATE [Suspect]
     Indication: HIV INFECTION
  2. PREZISTA [Concomitant]
     Indication: HIV INFECTION
  3. INTELENCE [Concomitant]
     Indication: HIV INFECTION
     Dosage: UNK
  4. NORVIR [Concomitant]
     Indication: HIV INFECTION
  5. EPZICOM [Concomitant]
     Indication: HIV INFECTION

REACTIONS (2)
  - PREMATURE BABY [None]
  - HYPERBILIRUBINAEMIA NEONATAL [None]
